FAERS Safety Report 17642145 (Version 1)
Quarter: 2020Q2

REPORT INFORMATION
  Report Type: Spontaneous
  Country: NL (occurrence: NL)
  Receive Date: 20200408
  Receipt Date: 20200408
  Transmission Date: 20200713
  Serious: Yes (Other)
  Sender: FDA-Public Use
  Company Number: NL-GLAXOSMITHKLINE-NL2020060353

PATIENT
  Age: 33 Year
  Sex: Female
  Weight: 84 kg

DRUGS (1)
  1. WELLBUTRIN XL [Suspect]
     Active Substance: BUPROPION HYDROCHLORIDE
     Indication: POST-TRAUMATIC STRESS DISORDER
     Dosage: 1X PER DAY
     Route: 065
     Dates: start: 20190601, end: 20200324

REACTIONS (7)
  - Aggression [Recovering/Resolving]
  - Intentional self-injury [Recovering/Resolving]
  - Urine odour abnormal [Recovering/Resolving]
  - Hypersensitivity [Recovering/Resolving]
  - Skin odour abnormal [Recovering/Resolving]
  - Agitation [Recovering/Resolving]
  - Anxiety [Recovering/Resolving]

NARRATIVE: CASE EVENT DATE: 20191130
